FAERS Safety Report 23903878 (Version 1)
Quarter: 2024Q2

REPORT INFORMATION
  Report Type: Spontaneous
  Country: US (occurrence: None)
  Receive Date: 20240527
  Receipt Date: 20240527
  Transmission Date: 20240716
  Serious: Yes (Disabling, Other)
  Sender: FDA-Public Use
  Company Number: 2024A121720

PATIENT

DRUGS (2)
  1. FULVESTRANT [Suspect]
     Active Substance: FULVESTRANT
     Indication: Breast cancer metastatic
     Dosage: SHOTS ON BOTTOM
     Route: 030
  2. IBRANCE [Suspect]
     Active Substance: PALBOCICLIB
     Route: 048

REACTIONS (10)
  - Hallucination [Unknown]
  - Mass [Unknown]
  - Infusion related reaction [Unknown]
  - Pain [Not Recovered/Not Resolved]
  - Memory impairment [Unknown]
  - Illness [Unknown]
  - Gait disturbance [Unknown]
  - Movement disorder [Unknown]
  - Dysphagia [Unknown]
  - Scar [Unknown]

NARRATIVE: CASE EVENT DATE: 20240208
